FAERS Safety Report 8862673 (Version 3)
Quarter: 2013Q1

REPORT INFORMATION
  Report Type: Spontaneous
  Country: JP (occurrence: JP)
  Receive Date: 20121026
  Receipt Date: 20130204
  Transmission Date: 20140127
  Serious: Yes (Other)
  Sender: FDA-Public Use
  Company Number: JP-PFIZER INC-2012266680

PATIENT
  Age: 86 Year
  Sex: Female
  Weight: 40 kg

DRUGS (14)
  1. NOVASTAN [Suspect]
     Indication: THROMBOTIC CEREBRAL INFARCTION
     Dosage: 30 MG, 2X/DAY
     Route: 042
     Dates: start: 20121002
  2. NOVASTAN [Suspect]
     Dosage: 20 MG, 2X/DAY
     Route: 042
     Dates: end: 20121008
  3. RADICUT [Suspect]
     Indication: THROMBOTIC CEREBRAL INFARCTION
     Dosage: 30 MG, 2X/DAY
     Route: 041
     Dates: start: 20121002, end: 20121009
  4. PLETAAL [Concomitant]
     Indication: THROMBOTIC CEREBRAL INFARCTION
     Dosage: 100 MG, 2X/DAY
     Route: 048
     Dates: start: 20121002, end: 20121005
  5. FERRUM [Concomitant]
     Indication: IRON DEFICIENCY ANAEMIA
     Dosage: 100 MG, UNK
     Route: 048
     Dates: start: 20121002, end: 20121005
  6. TAKEPRON [Concomitant]
     Indication: GASTRIC ULCER
     Dosage: 15 MG, UNK
     Route: 048
     Dates: start: 20121002, end: 20121005
  7. SOLDEM 3 [Concomitant]
     Indication: FLUID REPLACEMENT
     Dosage: 500 ML, UNK
     Route: 041
     Dates: start: 20121002, end: 20121003
  8. BFLUID [Concomitant]
     Indication: NUTRITIONAL SUPPLEMENTATION
     Dosage: 500 ML, UNK
     Route: 041
     Dates: start: 20121002, end: 20121012
  9. UNASYN-S [Concomitant]
     Indication: INFECTION
     Dosage: 3 G, 2X/DAY
     Route: 041
     Dates: start: 20121003, end: 20121005
  10. UNASYN-S [Concomitant]
     Indication: PNEUMONIA ASPIRATION
  11. METILON [Concomitant]
     Indication: PYREXIA
     Dosage: 250 MG, UNK
     Route: 042
     Dates: start: 20121003
  12. MEROPEN [Concomitant]
     Indication: INFECTION
     Dosage: 0.5 G, 2X/DAY
     Route: 041
     Dates: start: 20121006, end: 20121009
  13. MEROPEN [Concomitant]
     Indication: PNEUMONIA ASPIRATION
  14. GLUCOSE [Concomitant]
     Indication: NUTRITIONAL SUPPLEMENTATION
     Dosage: 500 ML, UNK
     Route: 041
     Dates: start: 20121010, end: 20121012

REACTIONS (1)
  - Renal failure acute [Recovered/Resolved]
